FAERS Safety Report 23321401 (Version 2)
Quarter: 2023Q4

REPORT INFORMATION
  Report Type: Spontaneous
  Country: CA (occurrence: CA)
  Receive Date: 20231220
  Receipt Date: 20231226
  Transmission Date: 20240110
  Serious: Yes (Hospitalization)
  Sender: FDA-Public Use
  Company Number: CA-PFIZER INC-PV202300171061

PATIENT
  Age: 36 Year
  Sex: Male
  Weight: 64.1 kg

DRUGS (5)
  1. SUTENT [Suspect]
     Active Substance: SUNITINIB MALATE
     Dosage: 37.5 MG, DAILY FOR 4 WEEKS, 14 DAYS, THEN OFF FOR 7 DAYS. (2 WEEKS ON, 1 WEEK OFF IN 21 DAYS CYCLE).
     Route: 048
     Dates: start: 20231023
  2. SUTENT [Suspect]
     Active Substance: SUNITINIB MALATE
     Dosage: 37.5 MG, DAILY FOR 4 WEEKS, 14 DAYS, THEN OFF FOR 7 DAYS. (2 WEEKS ON, 1 WEEK OFF IN 21 DAYS CYCLE).
     Route: 048
     Dates: start: 20231209
  3. KETOROLAC [Concomitant]
     Active Substance: KETOROLAC TROMETHAMINE
     Indication: Pain
     Dosage: UNK
  4. HYDROMORPHONE [Concomitant]
     Active Substance: HYDROMORPHONE
     Indication: Pain
     Dosage: UNK
  5. GABAPENTIN [Concomitant]
     Active Substance: GABAPENTIN
     Indication: Pain
     Dosage: UNK

REACTIONS (3)
  - Neuralgia [Unknown]
  - Renal mass [Unknown]
  - Radiculopathy [Unknown]
